FAERS Safety Report 5690743-4 (Version None)
Quarter: 2008Q2

REPORT INFORMATION
  Report Type: 
  Country: None (occurrence: None)
  Receive Date: 20080401
  Receipt Date: 20080319
  Transmission Date: 20081010
  Serious: Yes (Death, Hospitalization, Other)
  Sender: FDA-Public Use
  Company Number: DE-ELI_LILLY_AND_COMPANY-DE200803000454

PATIENT
  Sex: Female

DRUGS (1)
  1. CYMBALTA [Suspect]
     Indication: DEPRESSION
     Dosage: 60 MG, DAILY (1/D)
     Route: 065
     Dates: start: 20080101

REACTIONS (28)
  - ABASIA [None]
  - APHASIA [None]
  - BLOOD ALKALINE PHOSPHATASE INCREASED [None]
  - BLOOD BILIRUBIN INCREASED [None]
  - BLOOD CALCIUM DECREASED [None]
  - BLOOD CHLORIDE DECREASED [None]
  - BLOOD CREATINE PHOSPHOKINASE INCREASED [None]
  - BLOOD GLUCOSE INCREASED [None]
  - BLOOD LACTATE DEHYDROGENASE INCREASED [None]
  - BLOOD PHOSPHORUS DECREASED [None]
  - BLOOD POTASSIUM DECREASED [None]
  - DEAFNESS [None]
  - GENERAL PHYSICAL HEALTH DETERIORATION [None]
  - HAEMATOCRIT DECREASED [None]
  - HYPONATRAEMIA [None]
  - LYMPHOCYTE PERCENTAGE DECREASED [None]
  - MALIGNANT NEOPLASM PROGRESSION [None]
  - MEAN CELL HAEMOGLOBIN CONCENTRATION [None]
  - MEAN CELL HAEMOGLOBIN CONCENTRATION INCREASED [None]
  - MENINGEAL DISORDER [None]
  - MONOCYTE PERCENTAGE INCREASED [None]
  - NEUTROPHIL PERCENTAGE INCREASED [None]
  - PARANEOPLASTIC SYNDROME [None]
  - RENAL FAILURE [None]
  - SEPTIC SHOCK [None]
  - URINARY INCONTINENCE [None]
  - URINARY TRACT INFECTION [None]
  - UROSEPSIS [None]
